FAERS Safety Report 5024259-5 (Version None)
Quarter: 2006Q2

REPORT INFORMATION
  Report Type: 
  Country: None (occurrence: None)
  Receive Date: 20060607
  Receipt Date: 20060518
  Transmission Date: 20061013
  Serious: Yes (Hospitalization)
  Sender: FDA-Public Use
  Company Number: 225319

PATIENT
  Age: 46 Year
  Sex: Female
  Weight: 52 kg

DRUGS (6)
  1. AVASTIN [Suspect]
     Indication: COLON CANCER
     Dosage: 390 MG, Q3W, INTRAVENOUS
     Route: 042
     Dates: start: 20060121, end: 20060502
  2. CAPECITABINE CAPECITABINE) [Suspect]
     Indication: COLON CANCER
     Dosage: SEE IMAGE, ORAL
     Route: 048
     Dates: start: 20060121
  3. CAPECITABINE CAPECITABINE) [Suspect]
     Indication: COLON CANCER
     Dosage: SEE IMAGE, ORAL
     Route: 048
     Dates: start: 20060411
  4. OXALIPLATIN (OXALIPLATIN) [Suspect]
     Indication: COLON CANCER
     Dosage: 200 MG, Q2W, INTRAVENOUS
     Route: 042
     Dates: start: 20060121
  5. TROPISETRON (TROPISETRON HYDROCHLORIDE) [Concomitant]
  6. METOCLOPRAMIDE METOCLOPRAMIDE HYDROCHLORIDE) [Concomitant]

REACTIONS (2)
  - DIARRHOEA [None]
  - HYPERTENSION [None]
